FAERS Safety Report 6987569-8 (Version None)
Quarter: 2010Q3

REPORT INFORMATION
  Report Type: 
  Country: None (occurrence: None)
  Receive Date: 20100916
  Receipt Date: 20100903
  Transmission Date: 20110219
  Serious: Yes (Other)
  Sender: FDA-Public Use
  Company Number: US-PFIZER INC-2010112368

PATIENT
  Sex: Female
  Weight: 63.49 kg

DRUGS (11)
  1. NEURONTIN [Suspect]
     Indication: FIBROMYALGIA
     Dosage: 800 MG, 4X/DAY
     Route: 048
  2. NEURONTIN [Suspect]
     Indication: SCIATICA
  3. ZYRTEC [Concomitant]
     Dosage: 10 MG, UNK
  4. FLEXERIL [Concomitant]
     Dosage: 10 MG, UNK
  5. LIPITOR [Concomitant]
     Dosage: 10 MG, UNK
  6. NEXIUM [Concomitant]
     Dosage: 40 MG, UNK
  7. MONTELUKAST [Concomitant]
     Dosage: 10 MG, UNK
  8. METRONIDAZOLE [Concomitant]
     Dosage: 1 %, UNK
  9. KETOCONAZOLE [Concomitant]
     Dosage: 2 %, UNK
  10. FLONASE [Concomitant]
     Dosage: 50 MG, UNK
  11. ACTONEL [Concomitant]
     Dosage: 35 MG, UNK

REACTIONS (2)
  - DIPLOPIA [None]
  - VISUAL IMPAIRMENT [None]
